FAERS Safety Report 10956136 (Version 1)
Quarter: 2015Q1

REPORT INFORMATION
  Report Type: Spontaneous
  Country: FR (occurrence: None)
  Receive Date: 20150324
  Receipt Date: 20150324
  Transmission Date: 20150721
  Serious: Yes (Life-Threatening, Hospitalization)
  Sender: FDA-Public Use
  Company Number: FK201501256

PATIENT
  Age: 48 Year
  Sex: Male

DRUGS (13)
  1. TRACRIUM (ATRACURIUM BESILATE) [Concomitant]
  2. VASOACTIVE AMINES (AMINESS /00431701/) [Concomitant]
  3. VOLUVEN [Suspect]
     Active Substance: HYDROXYETHYL STARCH 130/0.4
     Indication: HAEMORRHAGE
     Dosage: NOT OTHERWISE
     Route: 042
     Dates: start: 20150302, end: 20150302
  4. VOLUVEN [Suspect]
     Active Substance: HYDROXYETHYL STARCH 130/0.4
     Indication: HYPOVOLAEMIC SHOCK
     Dosage: NOT OTHERWISE
     Route: 042
     Dates: start: 20150302, end: 20150302
  5. GELOFUSINE [Suspect]
     Active Substance: GELATIN\SODIUM CHLORIDE
     Indication: HYPOVOLAEMIC SHOCK
     Dosage: NOT OTHERWISE
     Route: 042
     Dates: start: 20150302, end: 20150302
  6. REMIFENTANIL [Concomitant]
     Active Substance: REMIFENTANIL
  7. CALCIUM [Concomitant]
     Active Substance: CALCIUM
  8. PROPOFOL. [Concomitant]
     Active Substance: PROPOFOL
  9. CEPHAZOLINE (CEFAZOLIN SODIUM) [Concomitant]
  10. CLOTTAFACT [Suspect]
     Active Substance: FIBRINOGEN HUMAN
     Indication: HYPOVOLAEMIC SHOCK
     Dates: start: 20150302
  11. EXACYL (TRANEXAMIC ACID) (TRANEXAMIC ACID) [Suspect]
     Active Substance: TRANEXAMIC ACID
     Indication: HAEMORRHAGE
     Dates: start: 20150302, end: 20150302
  12. KETAMINE [Concomitant]
     Active Substance: KETAMINE
  13. FROZEN PLASMA [Concomitant]

REACTIONS (1)
  - Anaphylactic shock [None]

NARRATIVE: CASE EVENT DATE: 20150302
